FAERS Safety Report 8679218 (Version 3)
Quarter: 2013Q4

REPORT INFORMATION
  Report Type: Spontaneous
  Country: US (occurrence: None)
  Receive Date: 20120706
  Receipt Date: 20131022
  Transmission Date: 20140711
  Serious: Yes (Other)
  Sender: FDA-Public Use
  Company Number: 2012-307

PATIENT
  Age: 47 Year
  Sex: Female

DRUGS (13)
  1. PRIALT [Suspect]
     Indication: PAIN
     Dosage: 0.01 UG, ONCE/HOUR, INTRATHECAL
     Route: 037
     Dates: start: 20090407, end: 200905
  2. PRIALT [Suspect]
     Indication: SPINAL FUSION SURGERY
     Dosage: 0.01 UG, ONCE/HOUR, INTRATHECAL
     Route: 037
     Dates: start: 20090407, end: 200905
  3. MORPHINE SULFATE [Suspect]
     Indication: PAIN
     Dosage: 0.54 MG, UG, QH,  INTRATHECAL
     Route: 037
  4. MORPHINE SULFATE [Suspect]
     Indication: SPINAL FUSION SURGERY
     Dosage: 0.54 MG, UG, QH,  INTRATHECAL
     Route: 037
  5. AVINZA (MORPHINE SULFATE) [Concomitant]
  6. OXYCODONE AND ACETAMINOPHEN (OXYCODONE HYDROCHLORIDE PARACTAMOL)? [Concomitant]
  7. VALIUM (DIAZEPAM) [Concomitant]
  8. NEURONTIN (GABAPENTIN) [Concomitant]
  9. BACLOFEN [Concomitant]
  10. ZANAFLEX (TIZANIDINE HYDROCHLORIDE) [Concomitant]
  11. EFFEXOR (VENLAFAXINE HYDROCHLORIDE) UNKNOWN [Concomitant]
  12. EFFEXOR (VENLAFAXINE HYDROCHLORDIE) [Concomitant]
  13. RELPAX (ELETRIPTAN HYDOBROMIDE) [Concomitant]

REACTIONS (22)
  - Catatonia [None]
  - Sleep disorder [None]
  - Hallucination [None]
  - Loss of consciousness [None]
  - Amnesia [None]
  - Thinking abnormal [None]
  - Delirium [None]
  - Blood pressure decreased [None]
  - Chest pain [None]
  - Abdominal pain upper [None]
  - Migraine [None]
  - Feeling abnormal [None]
  - Sensory disturbance [None]
  - Vomiting [None]
  - Diarrhoea [None]
  - Tremor [None]
  - Coordination abnormal [None]
  - Overdose [None]
  - Somnolence [None]
  - Dysarthria [None]
  - Drug withdrawal syndrome [None]
  - Fall [None]
